FAERS Safety Report 9132527 (Version 1)
Quarter: 2013Q1

REPORT INFORMATION
  Report Type: Spontaneous
  Country: GR (occurrence: GR)
  Receive Date: 20130301
  Receipt Date: 20130301
  Transmission Date: 20140127
  Serious: Yes (Other)
  Sender: FDA-Public Use
  Company Number: GR-GLAXOSMITHKLINE-B0871410A

PATIENT
  Age: 57 Year
  Sex: Female

DRUGS (2)
  1. ZOVIRAX [Suspect]
     Indication: HERPES SIMPLEX
     Route: 065
  2. UNKNOWN DRUG [Concomitant]
     Route: 065

REACTIONS (1)
  - Vitreous haemorrhage [Unknown]
